FAERS Safety Report 6752258-1 (Version None)
Quarter: 2010Q2

REPORT INFORMATION
  Report Type: 
  Country: None (occurrence: None)
  Receive Date: 20100602
  Receipt Date: 20100522
  Transmission Date: 20101027
  Serious: Yes (Life-Threatening, Hospitalization)
  Sender: FDA-Public Use
  Company Number: HU-PFIZER INC-2010060768

PATIENT
  Age: 2 Year
  Sex: Female

DRUGS (2)
  1. METHYLPREDNISOLONE [Suspect]
     Indication: BRONCHOSPASM
     Route: 042
  2. FLUCONAZOLE [Suspect]
     Indication: SEPSIS
     Route: 042

REACTIONS (3)
  - PNEUMONIA STREPTOCOCCAL [None]
  - SEPSIS [None]
  - STREPTOCOCCAL SEPSIS [None]
